FAERS Safety Report 9088569 (Version 1)
Quarter: 2013Q1

REPORT INFORMATION
  Report Type: Report from Study
  Country: US (occurrence: US)
  Receive Date: 20130201
  Receipt Date: 20130201
  Transmission Date: 20140127
  Serious: Yes (Other)
  Sender: FDA-Public Use
  Company Number: US-ABBOTT-13P-163-1040804-00

PATIENT
  Sex: Female
  Weight: 81.72 kg

DRUGS (7)
  1. HUMIRA [Suspect]
     Indication: CROHN^S DISEASE
     Dates: start: 200509
  2. LEVOBID [Concomitant]
     Indication: CROHN^S DISEASE
  3. PROTONIX [Concomitant]
     Indication: CROHN^S DISEASE
  4. WELLBUTRIN [Concomitant]
     Indication: DEPRESSION
  5. SULFASALAZINE [Concomitant]
     Indication: CROHN^S DISEASE
  6. LOVASTATIN [Concomitant]
     Indication: HYPERLIPIDAEMIA
  7. LOSARTIN [Concomitant]
     Indication: HYPERTENSION

REACTIONS (14)
  - Mental impairment [Recovered/Resolved]
  - Mobility decreased [Recovered/Resolved]
  - VIIth nerve paralysis [Not Recovered/Not Resolved]
  - Cerebrovascular accident [Recovered/Resolved]
  - Cerebrovascular accident [Recovered/Resolved with Sequelae]
  - Headache [Recovered/Resolved]
  - Local swelling [Not Recovered/Not Resolved]
  - Local swelling [Not Recovered/Not Resolved]
  - Visual acuity reduced [Not Recovered/Not Resolved]
  - Myalgia [Not Recovered/Not Resolved]
  - Arthralgia [Not Recovered/Not Resolved]
  - Weight increased [Not Recovered/Not Resolved]
  - Crohn^s disease [Not Recovered/Not Resolved]
  - Injection site pain [Not Recovered/Not Resolved]
